FAERS Safety Report 10031555 (Version 2)
Quarter: 2014Q1

REPORT INFORMATION
  Report Type: Report from Study
  Country: US (occurrence: US)
  Receive Date: 20140324
  Receipt Date: 20140324
  Transmission Date: 20141002
  Serious: Yes (Other)
  Sender: FDA-Public Use
  Company Number: US-ABBVIE-14P-163-1208203-00

PATIENT
  Sex: Female

DRUGS (5)
  1. HUMIRA [Suspect]
     Indication: RHEUMATOID ARTHRITIS
     Dosage: ONE TIME DOSE
     Dates: start: 20131030, end: 20131030
  2. HUMIRA [Suspect]
     Indication: CROHN^S DISEASE
     Dosage: ONE TIME DOSE
     Dates: start: 20131113, end: 20131113
  3. HUMIRA [Suspect]
     Dates: start: 20131127, end: 2014
  4. IRON [Concomitant]
     Indication: ANAEMIA
  5. UNNAMED DIURETIC [Concomitant]
     Indication: PRODUCT USED FOR UNKNOWN INDICATION

REACTIONS (8)
  - Lower extremity mass [Not Recovered/Not Resolved]
  - Abscess [Not Recovered/Not Resolved]
  - Abscess [Recovered/Resolved]
  - Pain in extremity [Not Recovered/Not Resolved]
  - Haemoglobin decreased [Unknown]
  - Chills [Not Recovered/Not Resolved]
  - Blood potassium decreased [Unknown]
  - Joint range of motion decreased [Not Recovered/Not Resolved]
